FAERS Safety Report 6551025-1 (Version None)
Quarter: 2010Q1

REPORT INFORMATION
  Report Type: 
  Country: None (occurrence: None)
  Receive Date: 20100122
  Receipt Date: 20100122
  Transmission Date: 20100710
  Serious: No
  Sender: FDA-Public Use
  Company Number: None

PATIENT
  Age: 31 Year
  Sex: Male
  Weight: 86.1834 kg

DRUGS (1)
  1. ZICAM  ZINC GEL [Suspect]
     Indication: NASOPHARYNGITIS
     Dates: start: 20011025, end: 20011025

REACTIONS (1)
  - ANOSMIA [None]
